FAERS Safety Report 10063572 (Version 1)
Quarter: 2014Q2

REPORT INFORMATION
  Report Type: Spontaneous
  Country: IT (occurrence: IT)
  Receive Date: 20140407
  Receipt Date: 20140407
  Transmission Date: 20141212
  Serious: Yes (Death, Other)
  Sender: FDA-Public Use
  Company Number: PHHY2014IT038861

PATIENT
  Age: 80 Year
  Sex: Female

DRUGS (5)
  1. GLIVEC [Suspect]
     Indication: GASTROINTESTINAL STROMAL TUMOUR
     Dosage: 400 MG, PER DAY
     Dates: start: 200402
  2. GLIVEC [Suspect]
     Dosage: 600 MG, PER DAY
  3. GLIVEC [Suspect]
     Dosage: 400 MG, PER DAY
     Dates: start: 200702, end: 200706
  4. SUNITINIB [Suspect]
     Dosage: 50 MG, PER DAY
  5. SUNITINIB [Suspect]
     Dosage: 37.5 MG, PER DAY
     Dates: start: 200610

REACTIONS (8)
  - Death [Fatal]
  - Femur fracture [Unknown]
  - Injury [Unknown]
  - Gastrointestinal stromal tumour [Unknown]
  - Malignant neoplasm progression [Unknown]
  - Haemorrhage [Unknown]
  - General physical health deterioration [Unknown]
  - Abdominal pain [Unknown]
